FAERS Safety Report 6354065-0 (Version None)
Quarter: 2009Q3

REPORT INFORMATION
  Report Type: 
  Country: None (occurrence: None)
  Receive Date: 20090914
  Receipt Date: 20090902
  Transmission Date: 20100115
  Serious: Yes (Hospitalization)
  Sender: FDA-Public Use
  Company Number: DE-ELI_LILLY_AND_COMPANY-DE200909000761

PATIENT
  Sex: Female
  Weight: 100 kg

DRUGS (1)
  1. GEMCITABINE HCL [Suspect]
     Indication: BREAST CANCER
     Dosage: 2000 MG, UNKNOWN
     Route: 042
     Dates: start: 20090501

REACTIONS (1)
  - MASTITIS [None]
